FAERS Safety Report 10248682 (Version 2)
Quarter: 2014Q2

REPORT INFORMATION
  Report Type: Spontaneous
  Country: US (occurrence: US)
  Receive Date: 20140620
  Receipt Date: 20140620
  Transmission Date: 20141212
  Serious: Yes (Hospitalization, Other)
  Sender: FDA-Public Use
  Company Number: US-AMGEN-USASP2012009502

PATIENT
  Age: 81 Year
  Sex: Female
  Weight: 54.42 kg

DRUGS (6)
  1. ENBREL [Suspect]
     Indication: RHEUMATOID ARTHRITIS
     Dosage: 50 MG, QWK
     Route: 058
     Dates: start: 20100301
  2. MTX                                /00113801/ [Concomitant]
     Indication: RHEUMATOID ARTHRITIS
     Dosage: 2.5 MG, QWK,ONE TABLET WEEKLY
  3. FOLIC ACID [Concomitant]
     Indication: RHEUMATOID ARTHRITIS
     Dosage: 3 MG, QD
     Route: 048
     Dates: start: 2005
  4. CALCIUM [Concomitant]
     Indication: OSTEOPOROSIS
     Dosage: UNK UNK, BID
     Route: 048
     Dates: start: 2005
  5. VIT D [Concomitant]
     Indication: OSTEOPOROSIS
     Dosage: 1000 IU, QD
     Route: 048
     Dates: start: 2005
  6. RECLAST [Concomitant]
     Indication: OSTEOPOROSIS
     Dosage: 5 MG, Q12MO
     Route: 042
     Dates: start: 2011

REACTIONS (27)
  - Hip fracture [Recovered/Resolved]
  - Myocardial infarction [Recovered/Resolved]
  - Lower limb fracture [Recovered/Resolved]
  - Tachycardia [Not Recovered/Not Resolved]
  - Dumping syndrome [Not Recovered/Not Resolved]
  - Walking aid user [Not Recovered/Not Resolved]
  - Dizziness [Not Recovered/Not Resolved]
  - Cardiac disorder [Not Recovered/Not Resolved]
  - Musculoskeletal pain [Not Recovered/Not Resolved]
  - Joint range of motion decreased [Not Recovered/Not Resolved]
  - Condition aggravated [Not Recovered/Not Resolved]
  - Pain in extremity [Not Recovered/Not Resolved]
  - Asthenia [Not Recovered/Not Resolved]
  - Malaise [Recovered/Resolved]
  - Laceration [Not Recovered/Not Resolved]
  - Visual impairment [Not Recovered/Not Resolved]
  - Fear [Recovered/Resolved]
  - Arthralgia [Not Recovered/Not Resolved]
  - Local swelling [Not Recovered/Not Resolved]
  - Mobility decreased [Not Recovered/Not Resolved]
  - Gait disturbance [Not Recovered/Not Resolved]
  - Limb discomfort [Not Recovered/Not Resolved]
  - Contusion [Recovered/Resolved]
  - Fall [Recovered/Resolved]
  - Finger deformity [Not Recovered/Not Resolved]
  - Chest pain [Recovered/Resolved]
  - Herpes zoster [Recovered/Resolved]
